FAERS Safety Report 6258070-4 (Version None)
Quarter: 2009Q3

REPORT INFORMATION
  Report Type: 
  Country: None (occurrence: None)
  Receive Date: 20090707
  Receipt Date: 20090625
  Transmission Date: 20100115
  Serious: Yes (Other)
  Sender: FDA-Public Use
  Company Number: PHEH2008US06111

PATIENT
  Sex: Female

DRUGS (5)
  1. ESTRADERM [Suspect]
     Indication: HORMONE REPLACEMENT THERAPY
     Dosage: UNK
     Route: 062
     Dates: start: 19910101, end: 19960806
  2. PREMARIN [Suspect]
     Indication: HORMONE REPLACEMENT THERAPY
     Dosage: .625 MG, UNK
     Dates: start: 19890101, end: 19960806
  3. PROVERA [Suspect]
     Indication: HORMONE REPLACEMENT THERAPY
     Dosage: 10 MG, QD
     Dates: start: 19890101, end: 19960806
  4. MPA [Suspect]
     Indication: HORMONE REPLACEMENT THERAPY
     Dosage: UNK
     Dates: end: 19960806
  5. DHEA [Concomitant]
     Route: 061

REACTIONS (11)
  - ARTERIAL OCCLUSIVE DISEASE [None]
  - ARTERIAL STENT INSERTION [None]
  - ARTHRALGIA [None]
  - BREAST CANCER [None]
  - CERVIX INFLAMMATION [None]
  - GENERAL PHYSICAL HEALTH DETERIORATION [None]
  - MALIGNANT BREAST LUMP REMOVAL [None]
  - MENTAL DISORDER [None]
  - OEDEMA PERIPHERAL [None]
  - RADIOTHERAPY [None]
  - SKIN DISORDER [None]
